FAERS Safety Report 17175319 (Version 1)
Quarter: 2019Q4

REPORT INFORMATION
  Report Type: Spontaneous
  Country: SE (occurrence: SE)
  Receive Date: 20191219
  Receipt Date: 20191219
  Transmission Date: 20200122
  Serious: Yes (Hospitalization)
  Sender: FDA-Public Use
  Company Number: SE-ELI_LILLY_AND_COMPANY-SE201912007828

PATIENT
  Age: 20 Year
  Sex: Female

DRUGS (7)
  1. PROPAVAN [Suspect]
     Active Substance: PROPIOMAZINE
     Indication: PRODUCT USED FOR UNKNOWN INDICATION
     Dosage: 500 MG, SINGLE
     Route: 048
     Dates: start: 20190217, end: 20190217
  2. NIPAXON [NOSCAPINE] [Suspect]
     Active Substance: NOSCAPINE
     Indication: PRODUCT USED FOR UNKNOWN INDICATION
     Dosage: 600 MG, SINGLE
     Route: 048
     Dates: start: 20190217, end: 20190217
  3. NALTREXONE [Concomitant]
     Active Substance: NALTREXONE
     Indication: PRODUCT USED FOR UNKNOWN INDICATION
     Dosage: UNK, UNKNOWN
     Route: 065
  4. IPREN [Suspect]
     Active Substance: IBUPROFEN
     Indication: PRODUCT USED FOR UNKNOWN INDICATION
     Dosage: 2 G, SINGLE
     Route: 048
     Dates: start: 20190217, end: 20190217
  5. STRATTERA [Concomitant]
     Active Substance: ATOMOXETINE HYDROCHLORIDE
     Indication: PRODUCT USED FOR UNKNOWN INDICATION
     Dosage: 20, UNKNOWN
     Route: 065
  6. EQUASYM DEPOT [Concomitant]
     Active Substance: METHYLPHENIDATE HYDROCHLORIDE
     Indication: PRODUCT USED FOR UNKNOWN INDICATION
     Dosage: 20, UNKNOWN
     Route: 065
  7. DULOXETINE HYDROCHLORIDE. [Suspect]
     Active Substance: DULOXETINE HYDROCHLORIDE
     Indication: PRODUCT USED FOR UNKNOWN INDICATION
     Dosage: 390 MG, SINGLE
     Route: 048
     Dates: start: 20190217, end: 20190217

REACTIONS (5)
  - Pupillary reflex impaired [Unknown]
  - Intentional overdose [Unknown]
  - Intentional self-injury [Unknown]
  - Loss of consciousness [Unknown]
  - Tachycardia [Unknown]

NARRATIVE: CASE EVENT DATE: 20190217
